FAERS Safety Report 20184441 (Version 1)
Quarter: 2021Q4

REPORT INFORMATION
  Report Type: Spontaneous
  Country: US (occurrence: US)
  Receive Date: 20211214
  Receipt Date: 20211214
  Transmission Date: 20220303
  Serious: Yes (Other)
  Sender: FDA-Public Use
  Company Number: US-NOVOPROD-778199

PATIENT
  Age: 73 Year
  Sex: Female

DRUGS (2)
  1. NOVOLIN 70/30 [Suspect]
     Active Substance: INSULIN HUMAN
     Indication: Product used for unknown indication
     Dosage: 105 IU, QD (55 UNITS MORNING AND 50 UNITS AT NIGHT)
     Route: 058
  2. NOVOLIN 70/30 [Suspect]
     Active Substance: INSULIN HUMAN
     Dosage: 105 IU, QD (55 UNITS MORNING AND 50 UNITS AT NIGHT)
     Route: 058

REACTIONS (5)
  - Blood glucose increased [Not Recovered/Not Resolved]
  - Malaise [Recovered/Resolved]
  - Blood glucose increased [Recovered/Resolved]
  - Product quality issue [Recovered/Resolved]
  - Product storage error [Unknown]

NARRATIVE: CASE EVENT DATE: 20201227
